FAERS Safety Report 10854988 (Version 3)
Quarter: 2015Q3

REPORT INFORMATION
  Report Type: Report from Study
  Country: GB (occurrence: GB)
  Receive Date: 20150223
  Receipt Date: 20150717
  Transmission Date: 20151125
  Serious: Yes (Death, Life-Threatening, Hospitalization, Other)
  Sender: FDA-Public Use
  Company Number: GB-JNJFOC-20150212082

PATIENT
  Age: 79 Year
  Sex: Male
  Weight: 65.9 kg

DRUGS (2)
  1. CANAGLIFLOZIN [Suspect]
     Active Substance: CANAGLIFLOZIN
     Route: 048
  2. CANAGLIFLOZIN [Suspect]
     Active Substance: CANAGLIFLOZIN
     Indication: TYPE 2 DIABETES MELLITUS
     Route: 048
     Dates: start: 20100608, end: 20140916

REACTIONS (2)
  - Sepsis [Fatal]
  - Cardiac failure [Fatal]

NARRATIVE: CASE EVENT DATE: 20141124
